FAERS Safety Report 5580483-4 (Version None)
Quarter: 2008Q1

REPORT INFORMATION
  Report Type: 
  Country: None (occurrence: None)
  Receive Date: 20080103
  Receipt Date: 20071227
  Transmission Date: 20080703
  Serious: No
  Sender: FDA-Public Use
  Company Number: US-BAXTER-2007BH010097

PATIENT

DRUGS (4)
  1. GAMMAGARD S/D [Suspect]
     Indication: DRUG USE FOR UNKNOWN INDICATION
     Dosage: DOSE UNIT:UNKNOWN
     Route: 042
  2. GAMMAGARD S/D [Suspect]
     Dosage: DOSE UNIT:UNKNOWN
     Route: 042
  3. GAMMAGARD S/D [Suspect]
     Dosage: DOSE UNIT:UNKNOWN
     Route: 042
  4. GAMMAGARD S/D [Suspect]
     Dosage: DOSE UNIT:UNKNOWN
     Route: 042

REACTIONS (1)
  - HEPATITIS B [None]
